FAERS Safety Report 20632119 (Version 28)
Quarter: 2024Q3

REPORT INFORMATION
  Report Type: Spontaneous
  Country: IN (occurrence: IN)
  Receive Date: 20220324
  Receipt Date: 20240918
  Transmission Date: 20241016
  Serious: Yes (Other)
  Sender: PFIZER
  Company Number: IN-PFIZER INC-202101588624

PATIENT
  Age: 38 Year
  Sex: Female

DRUGS (30)
  1. PALBOCICLIB [Suspect]
     Active Substance: PALBOCICLIB
     Dosage: 125 MG 1X/DAY, D1 TO D21 FOLLOWED BY 1 WEEK OFF
     Route: 048
     Dates: start: 20210807
  2. PALBOCICLIB [Suspect]
     Active Substance: PALBOCICLIB
     Dosage: OD X 21 DAY F/B ONE WEEK OFF
     Route: 048
  3. ULTRANURON PLUS [Concomitant]
     Dosage: UNK, 2X/DAY
     Route: 048
  4. TAYO [COLECALCIFEROL] [Concomitant]
     Dosage: 60000 IU, MONTHLY
     Route: 048
  5. TAYO [COLECALCIFEROL] [Concomitant]
     Dosage: ONCE EVERY 2 WEEKS
     Route: 048
  6. GOSERELIN [Concomitant]
     Active Substance: GOSERELIN
     Dosage: 3.6 MG, MONTHLY
     Route: 058
  7. GOSERELIN [Concomitant]
     Active Substance: GOSERELIN
     Dosage: UNK
     Dates: end: 20231025
  8. ZOLEDRONIC ACID [Concomitant]
     Active Substance: ZOLEDRONIC ACID
     Dosage: 4 MG, MONTHLY IN 100 ML NS INFUSION OVER 15 MINUTES
     Route: 042
  9. GABAPIN NT [Concomitant]
     Dosage: UNK, 1X/DAY
     Route: 048
  10. PANTOPRAZOLE SODIUM [Concomitant]
     Active Substance: PANTOPRAZOLE SODIUM
     Dosage: 40 MG, 2X/DAY, BEFORE BREAKFAST
     Route: 048
  11. LETROZOLE [Concomitant]
     Active Substance: LETROZOLE
     Dosage: 2.5 MG, 1X/DAY
     Route: 048
  12. CREMAFFIN PLUS [Concomitant]
     Dosage: 2 TSF, 1X/DAY
     Route: 048
  13. FORCAN [Concomitant]
     Dosage: UNK, WEEKLY
     Route: 048
  14. EVION [Concomitant]
     Active Substance: .ALPHA.-TOCOPHEROL ACETATE
     Dosage: 400 MG, 1X/DAY
     Route: 048
  15. ROSUVAS F [Concomitant]
     Dosage: UNK, 1X/DAY
     Route: 048
  16. PANTOCID DSR [Concomitant]
     Dosage: UNK, 2X/DAY
     Route: 048
  17. NAXDOM [Concomitant]
     Dosage: UNK, AS NEEDED
     Route: 048
  18. TOPAZ [Concomitant]
     Dosage: 50 MG, 2X/DAY
     Route: 048
  19. REMYLIN-AX [Concomitant]
     Dosage: UNK, 1X/DAY
     Route: 048
  20. CLONAFIT [Concomitant]
     Dosage: UNK
     Route: 048
  21. GLUTATHIONE [Concomitant]
     Active Substance: GLUTATHIONE
     Dosage: UNK, 2X/DAY
  22. DENOSUMAB [Concomitant]
     Active Substance: DENOSUMAB
     Dosage: 120 UG
  23. DENOSUMAB [Concomitant]
     Active Substance: DENOSUMAB
     Dosage: 120 MG, MONTHLY
     Route: 058
  24. ZOLEDRONIC ACID [Concomitant]
     Active Substance: ZOLEDRONIC ACID
     Dosage: UNK
     Dates: end: 20240103
  25. GRAFEEL [Concomitant]
     Dosage: 300 UG (AS INSTRUCTED OND28 30 D31 OF PALBACE SUBCUTANEOUS 3 DAYS)
     Route: 058
  26. CIPLAR [Concomitant]
     Dosage: 40 MG, 2X/DAY, 90 DAYS
     Route: 048
  27. ULTRACET [Concomitant]
     Active Substance: ACETAMINOPHEN\TRAMADOL HYDROCHLORIDE
     Indication: Pain
     Dosage: 30 DAYS
     Route: 048
  28. HEADSET [Concomitant]
     Dosage: SOS ORAL 90 DAYS
     Route: 048
  29. ACETAMINOPHEN [Concomitant]
     Active Substance: ACETAMINOPHEN
     Indication: Pain
     Dosage: UNK
     Route: 048
  30. CEFUROXIME SODIUM [Concomitant]
     Active Substance: CEFUROXIME SODIUM
     Dosage: UNK, 2X/DAY (AFTER MEAL 5 DAYS)
     Route: 048

REACTIONS (17)
  - Idiopathic intracranial hypertension [Unknown]
  - Neutropenia [Unknown]
  - White blood cell count decreased [Unknown]
  - Hepatic steatosis [Unknown]
  - Hepatic cyst [Unknown]
  - Blood urea increased [Unknown]
  - Pain in extremity [Unknown]
  - Lipids abnormal [Unknown]
  - Fat tissue increased [Unknown]
  - Haemoglobin decreased [Unknown]
  - Platelet count decreased [Unknown]
  - Blood creatinine increased [Unknown]
  - Full blood count abnormal [Unknown]
  - Pollakiuria [Unknown]
  - Blood triglycerides increased [Unknown]
  - Abdominal mass [Unknown]
  - Full blood count abnormal [Unknown]

NARRATIVE: CASE EVENT DATE: 20240606
